FAERS Safety Report 7549431-1 (Version None)
Quarter: 2011Q2

REPORT INFORMATION
  Report Type: 
  Country: None (occurrence: None)
  Receive Date: 20110615
  Receipt Date: 20040721
  Transmission Date: 20111010
  Serious: Yes (Hospitalization, Other)
  Sender: FDA-Public Use
  Company Number: PHFR2004GB01179

PATIENT
  Sex: Female

DRUGS (3)
  1. CLOZAPINE [Suspect]
     Dosage: 200 MG/DAY
     Route: 048
  2. CLOZAPINE [Suspect]
     Indication: SCHIZOPHRENIA
     Dosage: 300 MG/DAY
     Route: 048
     Dates: start: 20030804
  3. CLOZAPINE [Suspect]
     Dosage: 100 MG/DAY
     Route: 048

REACTIONS (11)
  - PHAEOCHROMOCYTOMA [None]
  - ANXIETY [None]
  - HYPERTENSION [None]
  - TACHYCARDIA [None]
  - RASH MACULO-PAPULAR [None]
  - PSYCHOMOTOR HYPERACTIVITY [None]
  - PERICARDITIS [None]
  - PALPITATIONS [None]
  - NAUSEA [None]
  - DIZZINESS [None]
  - ORTHOSTATIC HYPOTENSION [None]
